FAERS Safety Report 7464838-9 (Version None)
Quarter: 2011Q2

REPORT INFORMATION
  Report Type: 
  Country: None (occurrence: None)
  Receive Date: 20110509
  Receipt Date: 20090817
  Transmission Date: 20111010
  Serious: Yes (Other)
  Sender: FDA-Public Use
  Company Number: US-BAYER-200929813NA

PATIENT
  Age: 51 Year
  Sex: Male

DRUGS (5)
  1. FIBRINKLEBER [Concomitant]
     Dosage: 4 ML, FROZEN BILLED
     Dates: start: 20040512
  2. OMNIPAQUE 140 [Concomitant]
     Indication: CATHETERISATION CARDIAC
     Dosage: 150 ML + 200 ML BILLED
     Dates: start: 20040511
  3. OMNIPAQUE 140 [Concomitant]
     Indication: INTRA-AORTIC BALLOON PLACEMENT
  4. TRASYLOL [Suspect]
     Indication: CORONARY ARTERY BYPASS
     Dosage: 100 ML X 5 VIAL BILLED
     Route: 042
     Dates: start: 20040512
  5. OMNIPAQUE 140 [Concomitant]
     Indication: ANGIOGRAM

REACTIONS (11)
  - RENAL FAILURE [None]
  - MULTI-ORGAN FAILURE [None]
  - INJURY [None]
  - EMOTIONAL DISTRESS [None]
  - FEAR [None]
  - PAIN [None]
  - UNEVALUABLE EVENT [None]
  - RENAL IMPAIRMENT [None]
  - RENAL INJURY [None]
  - STRESS [None]
  - ANXIETY [None]
